FAERS Safety Report 14595257 (Version 1)
Quarter: 2018Q1

REPORT INFORMATION
  Report Type: Spontaneous
  Country: US (occurrence: US)
  Receive Date: 20180302
  Receipt Date: 20180302
  Transmission Date: 20180509
  Serious: No
  Sender: FDA-Public Use
  Company Number: US-AKORN PHARMACEUTICALS-2017AKN01410

PATIENT
  Sex: Female

DRUGS (2)
  1. TRIPHASIC BIRTH CONTROL (ETHINYL ESTRADIOL\NORGESTIMATE) [Suspect]
     Active Substance: ETHINYL ESTRADIOL\NORGESTIMATE
  2. MYORISAN [Suspect]
     Active Substance: ISOTRETINOIN
     Indication: ICHTHYOSIS
     Dosage: 20 MG, 1X/DAY
     Dates: start: 20140324

REACTIONS (3)
  - Menstruation irregular [Unknown]
  - Off label use [Unknown]
  - Treatment noncompliance [None]
